FAERS Safety Report 8478553 (Version 2)
Quarter: 2012Q4

REPORT INFORMATION
  Report Type: 
  Country: VE (occurrence: VE)
  Receive Date: 20120327
  Receipt Date: 20121022
  Transmission Date: 20130627
  Serious: Yes (Hospitalization, Other)
  Sender: FDA-Public Use
  Company Number: PHHY2012VE025528

PATIENT
  Age: 50 Year
  Sex: Female

DRUGS (3)
  1. ACLASTA [Suspect]
     Indication: OSTEOPOROSIS
     Dosage: 5 mg, UNK
     Route: 042
     Dates: start: 20111101
  2. CONCOR [Concomitant]
     Indication: TACHYCARDIA
     Dosage: 5 mg, QD
     Route: 048
     Dates: start: 2002
  3. GLUCOFAGE [Concomitant]
     Indication: DIABETES MELLITUS
     Dosage: 850 mg, BID
     Route: 048
     Dates: start: 2000

REACTIONS (16)
  - Mononucleosis syndrome [Unknown]
  - Asthenia [Unknown]
  - Decreased immune responsiveness [Unknown]
  - White blood cell count decreased [Unknown]
  - Bone infarction [Not Recovered/Not Resolved]
  - Bone cancer [Unknown]
  - Pain in extremity [Recovered/Resolved]
  - Dysstasia [Unknown]
  - Asphyxia [Recovered/Resolved]
  - Tachycardia [Recovered/Resolved]
  - Muscular weakness [Unknown]
  - Dyspnoea [Recovering/Resolving]
  - Bone pain [Recovered/Resolved]
  - Dizziness [Recovered/Resolved]
  - Hypersensitivity [Recovering/Resolving]
  - Feeling abnormal [Unknown]
